FAERS Safety Report 4326495-X (Version None)
Quarter: 2004Q1

REPORT INFORMATION
  Report Type: 
  Country: None (occurrence: None)
  Receive Date: 20040330
  Receipt Date: 20040227
  Transmission Date: 20041129
  Serious: Yes (Death)
  Sender: FDA-Public Use
  Company Number: US-BRISTOL-MYERS SQUIBB COMPANY-12519856

PATIENT
  Age: 87 Year
  Sex: Male

DRUGS (1)
  1. ENKAID [Suspect]
     Indication: BLADDER CANCER
     Dosage: THERAPY STARTED WELL BEFORE REPORTING PHYSICIAN'S TIME.
     Route: 048

REACTIONS (2)
  - CHRONIC OBSTRUCTIVE AIRWAYS DISEASE [None]
  - RESPIRATORY FAILURE [None]
